FAERS Safety Report 13577595 (Version 1)
Quarter: 2017Q2

REPORT INFORMATION
  Report Type: Spontaneous
  Country: US (occurrence: US)
  Receive Date: 20170524
  Receipt Date: 20170524
  Transmission Date: 20170830
  Serious: No
  Sender: FDA-Public Use
  Company Number: US-MYLANLABS-2016M1036919

PATIENT
  Sex: Male

DRUGS (2)
  1. CLOMIPRAMINE [Suspect]
     Active Substance: CLOMIPRAMINE
     Indication: OBSESSIVE-COMPULSIVE DISORDER
     Dosage: 100 MG, QHS
     Route: 048
     Dates: start: 2016
  2. CLOMIPRAMINE [Suspect]
     Active Substance: CLOMIPRAMINE
     Indication: OBSESSIVE-COMPULSIVE DISORDER
     Dosage: 150 MG, QHS
     Route: 048
     Dates: start: 2016

REACTIONS (4)
  - Dry mouth [Recovered/Resolved]
  - Tremor [Recovered/Resolved]
  - Muscle spasms [Recovered/Resolved]
  - Weight increased [Not Recovered/Not Resolved]

NARRATIVE: CASE EVENT DATE: 2016
